FAERS Safety Report 12825711 (Version 2)
Quarter: 2016Q4

REPORT INFORMATION
  Report Type: Report from Study
  Country: JP (occurrence: JP)
  Receive Date: 20161006
  Receipt Date: 20161111
  Transmission Date: 20170207
  Serious: Yes (Other)
  Sender: FDA-Public Use
  Company Number: JP-B.I. PHARMACEUTICALS,INC./RIDGEFIELD-2015-BI-22523NB

PATIENT
  Age: 67 Year
  Sex: Female
  Weight: 40 kg

DRUGS (3)
  1. GILOTRIF [Suspect]
     Active Substance: AFATINIB
     Indication: LUNG ADENOCARCINOMA
     Route: 048
     Dates: start: 20150317, end: 20150511
  2. GILOTRIF [Suspect]
     Active Substance: AFATINIB
     Indication: LUNG ADENOCARCINOMA
     Route: 048
     Dates: start: 20150714, end: 20160411
  3. GILOTRIF [Suspect]
     Active Substance: AFATINIB
     Indication: LUNG ADENOCARCINOMA
     Route: 048
     Dates: start: 20150512, end: 20150702

REACTIONS (6)
  - Diarrhoea [Recovered/Resolved]
  - Paronychia [Recovered/Resolved]
  - Back pain [Recovered/Resolved]
  - Stomatitis [Recovered/Resolved]
  - Metastases to pleura [Unknown]
  - Hand dermatitis [Recovered/Resolved]

NARRATIVE: CASE EVENT DATE: 20150323
